FAERS Safety Report 11763590 (Version 1)
Quarter: 2015Q4

REPORT INFORMATION
  Report Type: Spontaneous
  Country: US (occurrence: US)
  Receive Date: 20151120
  Receipt Date: 20151120
  Transmission Date: 20160304
  Serious: No
  Sender: FDA-Public Use
  Company Number: US-ELI_LILLY_AND_COMPANY-US201304001453

PATIENT
  Age: 67 Year
  Sex: Female

DRUGS (2)
  1. FORTEO [Suspect]
     Active Substance: TERIPARATIDE
     Dosage: UNK
     Dates: start: 20130401
  2. FORTEO [Suspect]
     Active Substance: TERIPARATIDE
     Indication: OSTEOPOROSIS
     Dosage: UNK
     Dates: start: 20130322

REACTIONS (10)
  - Rash [Unknown]
  - Tremor [Unknown]
  - Fatigue [Recovered/Resolved]
  - Asthenia [Unknown]
  - Rash [Recovered/Resolved]
  - Fatigue [Unknown]
  - Pyrexia [Unknown]
  - Pyrexia [Recovered/Resolved]
  - Drug hypersensitivity [Unknown]
  - Influenza like illness [Unknown]

NARRATIVE: CASE EVENT DATE: 20130329
